FAERS Safety Report 23799892 (Version 1)
Quarter: 2024Q2

REPORT INFORMATION
  Report Type: Spontaneous
  Country: VN (occurrence: None)
  Receive Date: 20240430
  Receipt Date: 20240430
  Transmission Date: 20240716
  Serious: Yes (Death, Hospitalization, Other)
  Sender: FDA-Public Use
  Company Number: VN-ROCHE-3550662

PATIENT

DRUGS (1)
  1. RITUXIMAB [Suspect]
     Active Substance: RITUXIMAB
     Indication: Encephalitis autoimmune
     Route: 065

REACTIONS (13)
  - Psychotic disorder [Fatal]
  - Pyrexia [Unknown]
  - Headache [Unknown]
  - Ill-defined disorder [Unknown]
  - Altered state of consciousness [Unknown]
  - Seizure [Unknown]
  - Behaviour disorder [Unknown]
  - Dyskinesia [Unknown]
  - Ovarian cancer [Unknown]
  - Brain scan abnormal [Unknown]
  - Motor dysfunction [Unknown]
  - Central-alveolar hypoventilation [Unknown]
  - Off label use [Unknown]
